FAERS Safety Report 6140532-1 (Version None)
Quarter: 2009Q2

REPORT INFORMATION
  Report Type: 
  Country: None (occurrence: None)
  Receive Date: 20090402
  Receipt Date: 20090310
  Transmission Date: 20091009
  Serious: No
  Sender: FDA-Public Use
  Company Number: US-PFIZER INC-2008015845

PATIENT
  Sex: Male
  Weight: 52.2 kg

DRUGS (4)
  1. DETROL LA [Suspect]
     Dosage: 4 MG, 1X/DAY
     Dates: start: 20080201
  2. VIREAD [Concomitant]
     Dosage: UNK
  3. EPIVIR [Concomitant]
     Dosage: UNK
  4. FOSAMPRENAVIR [Concomitant]
     Dosage: UNK

REACTIONS (14)
  - ABDOMINAL DISCOMFORT [None]
  - ASTHENIA [None]
  - CONSTIPATION [None]
  - DRUG EFFECT DECREASED [None]
  - DRUG INEFFECTIVE [None]
  - DYSSTASIA [None]
  - FATIGUE [None]
  - HEADACHE [None]
  - HYPOTONIA [None]
  - LETHARGY [None]
  - MUSCULAR WEAKNESS [None]
  - SEDATION [None]
  - SLEEP DISORDER [None]
  - SLUGGISHNESS [None]
